FAERS Safety Report 9516664 (Version 2)
Quarter: 2013Q3

REPORT INFORMATION
  Report Type: Spontaneous
  Country: BE (occurrence: BE)
  Receive Date: 20130911
  Receipt Date: 20130911
  Transmission Date: 20140515
  Serious: Yes (Other)
  Sender: FDA-Public Use
  Company Number: BE-ASTRAZENECA-2013SE65296

PATIENT
  Age: 18641 Day
  Sex: Male
  Weight: 100 kg

DRUGS (3)
  1. BRILIQUE [Suspect]
     Indication: ACUTE MYOCARDIAL INFARCTION
     Route: 048
     Dates: start: 20130615, end: 20130618
  2. EMCONCOR [Concomitant]
     Indication: DRESSLER^S SYNDROME
     Route: 048
     Dates: start: 20130615
  3. EMCONCOR [Concomitant]
     Indication: DRESSLER^S SYNDROME
     Route: 048
     Dates: end: 20130618

REACTIONS (1)
  - Electrocardiogram abnormal [Recovered/Resolved]
